FAERS Safety Report 7291175-8 (Version None)
Quarter: 2011Q1

REPORT INFORMATION
  Report Type: 
  Country: None (occurrence: None)
  Receive Date: 20110214
  Receipt Date: 20110202
  Transmission Date: 20110831
  Serious: Yes (Death)
  Sender: FDA-Public Use
  Company Number: RU-MERCK-1102USA00439

PATIENT
  Age: 19 Year
  Sex: Male

DRUGS (4)
  1. XIGRIS [Concomitant]
     Route: 065
  2. CANCIDAS [Suspect]
     Route: 042
  3. PRIMAXIN [Concomitant]
     Route: 065
  4. ZYVOX [Concomitant]
     Route: 065

REACTIONS (1)
  - SEPTIC SHOCK [None]
